FAERS Safety Report 7094394-9 (Version None)
Quarter: 2010Q4

REPORT INFORMATION
  Report Type: 
  Country: None (occurrence: None)
  Receive Date: 20101101
  Receipt Date: 20101011
  Transmission Date: 20110411
  Serious: Yes (Hospitalization, Disabling)
  Sender: FDA-Public Use
  Company Number: GB-000305

PATIENT
  Age: 57 Year
  Sex: Male

DRUGS (3)
  1. PROHANCE [Suspect]
     Indication: BRAIN ABSCESS
  2. PROHANCE [Suspect]
     Indication: NUCLEAR MAGNETIC RESONANCE IMAGING
  3. GADOLINIUM CONTRAST AGENT (GADOLINIUM CONTRAST AGENT) SOLUTION FOR INJ [Suspect]
     Indication: PRODUCT USED FOR UNKNOWN INDICATION

REACTIONS (1)
  - NEPHROGENIC SYSTEMIC FIBROSIS [None]
